FAERS Safety Report 15599715 (Version 9)
Quarter: 2023Q2

REPORT INFORMATION
  Report Type: Spontaneous
  Country: CA (occurrence: CA)
  Receive Date: 20181108
  Receipt Date: 20230516
  Transmission Date: 20230722
  Serious: Yes (Hospitalization, Other)
  Sender: FDA-Public Use
  Company Number: CA-HEALTH CANADA-E2B_01898068

PATIENT
  Sex: Male

DRUGS (96)
  1. CITALOPRAM HYDROBROMIDE [Suspect]
     Active Substance: CITALOPRAM HYDROBROMIDE
     Indication: Schizophrenia
     Dosage: 80 MG, QD
     Route: 065
     Dates: start: 200410, end: 200704
  2. CITALOPRAM HYDROBROMIDE [Suspect]
     Active Substance: CITALOPRAM HYDROBROMIDE
     Indication: Depression
     Dosage: 80 MG
  3. ASENAPINE MALEATE [Suspect]
     Active Substance: ASENAPINE MALEATE
     Indication: Schizophrenia
     Dosage: 100 MG
     Route: 065
  4. ASENAPINE MALEATE [Suspect]
     Active Substance: ASENAPINE MALEATE
     Indication: Psychotic disorder
     Dosage: 600 MG
     Route: 065
     Dates: start: 2012, end: 2012
  5. ASENAPINE MALEATE [Suspect]
     Active Substance: ASENAPINE MALEATE
     Indication: Product used for unknown indication
     Dosage: UNK
  6. FLUOXETINE HYDROCHLORIDE [Suspect]
     Active Substance: FLUOXETINE HYDROCHLORIDE
     Indication: Schizophrenia
     Dosage: 80 MG, QD
     Route: 065
     Dates: start: 200711, end: 200903
  7. FLUOXETINE HYDROCHLORIDE [Suspect]
     Active Substance: FLUOXETINE HYDROCHLORIDE
     Indication: Depression
     Dosage: 80 MG
  8. AMISULPRIDE [Suspect]
     Active Substance: AMISULPRIDE
     Indication: Schizophrenia
     Dosage: 30 MG
  9. AMISULPRIDE [Suspect]
     Active Substance: AMISULPRIDE
     Indication: Psychotherapy
     Dosage: 1200 MG, QD
     Route: 065
     Dates: start: 201401
  10. ARIPIPRAZOLE [Suspect]
     Active Substance: ARIPIPRAZOLE
     Indication: Schizophrenia
     Dosage: 30 MG, QD
     Route: 065
     Dates: start: 2011
  11. ARIPIPRAZOLE [Suspect]
     Active Substance: ARIPIPRAZOLE
     Indication: Psychotherapy
     Dosage: 30 MG
  12. CLOMIPRAMINE HYDROCHLORIDE [Suspect]
     Active Substance: CLOMIPRAMINE HYDROCHLORIDE
     Indication: Schizophrenia
     Dosage: 250 MG, QD
     Route: 065
     Dates: start: 200803, end: 200903
  13. CLOMIPRAMINE HYDROCHLORIDE [Suspect]
     Active Substance: CLOMIPRAMINE HYDROCHLORIDE
     Dosage: 250 MG
  14. CLOZAPINE [Suspect]
     Active Substance: CLOZAPINE
     Indication: Schizophrenia
     Dosage: 350 MG
     Route: 065
  15. CLOZAPINE [Suspect]
     Active Substance: CLOZAPINE
     Indication: Psychotic disorder
     Dosage: 350 MG, QD
     Route: 048
     Dates: start: 200404, end: 200611
  16. FLUPENTIXOL [Suspect]
     Active Substance: FLUPENTIXOL
     Indication: Schizophrenia
     Dosage: 6 MG, QD
     Route: 065
     Dates: start: 200701, end: 200704
  17. FLUPENTIXOL [Suspect]
     Active Substance: FLUPENTIXOL
     Indication: Psychotic disorder
     Dosage: 6 MG
  18. FLUPENTIXOL [Suspect]
     Active Substance: FLUPENTIXOL
     Dosage: 60 MG
  19. GABAPENTIN [Suspect]
     Active Substance: GABAPENTIN
     Indication: Schizophrenia
     Dosage: 1800 MG, QD
     Route: 065
     Dates: start: 200807, end: 200811
  20. GABAPENTIN [Suspect]
     Active Substance: GABAPENTIN
     Indication: Affective disorder
     Dosage: 600 MG, QD
     Route: 065
     Dates: start: 200704, end: 200706
  21. GABAPENTIN [Suspect]
     Active Substance: GABAPENTIN
     Indication: Product used for unknown indication
     Dosage: UNK
     Dates: end: 200811
  22. GABAPENTIN [Suspect]
     Active Substance: GABAPENTIN
     Dosage: 1600 MG, UNKNOWN
  23. GABAPENTIN [Suspect]
     Active Substance: GABAPENTIN
     Dosage: 1800 MG
  24. GABAPENTIN [Suspect]
     Active Substance: GABAPENTIN
     Dosage: 600 MG
     Dates: end: 200706
  25. GABAPENTIN [Suspect]
     Active Substance: GABAPENTIN
     Dosage: 1800 MG
  26. HALOPERIDOL [Suspect]
     Active Substance: HALOPERIDOL
     Indication: Schizophrenia
     Dosage: 5 MG, QD
     Route: 065
     Dates: start: 2006, end: 2006
  27. HALOPERIDOL [Suspect]
     Active Substance: HALOPERIDOL
     Indication: Psychotic disorder
     Dosage: 5 MG
  28. HALOPERIDOL [Suspect]
     Active Substance: HALOPERIDOL
     Indication: Product used for unknown indication
     Dosage: 6 MG
  29. HALOPERIDOL [Suspect]
     Active Substance: HALOPERIDOL
     Dosage: 5 MG, LIQUID
     Route: 030
  30. LITHIUM CARBONATE [Suspect]
     Active Substance: LITHIUM CARBONATE
     Indication: Schizophrenia
     Dosage: 1050 MG
  31. LITHIUM CARBONATE [Suspect]
     Active Substance: LITHIUM CARBONATE
     Indication: Product used for unknown indication
     Dosage: 1800 MG, QD
     Route: 065
     Dates: start: 200101, end: 200703
  32. LITHIUM CARBONATE [Suspect]
     Active Substance: LITHIUM CARBONATE
     Indication: Affective disorder
     Dosage: 2400 MG, QD
  33. LITHIUM CARBONATE [Suspect]
     Active Substance: LITHIUM CARBONATE
     Dosage: 1800 MG
     Dates: start: 200101, end: 200703
  34. LITHIUM CARBONATE [Suspect]
     Active Substance: LITHIUM CARBONATE
     Dosage: 2400 MG
  35. LITHIUM [Suspect]
     Active Substance: LITHIUM
     Indication: Affective disorder
     Dosage: 2400 MG
  36. LITHIUM [Suspect]
     Active Substance: LITHIUM
     Indication: Product used for unknown indication
     Dosage: 1050 MG, QD
     Dates: end: 200807
  37. LITHIUM [Suspect]
     Active Substance: LITHIUM
     Dosage: 1800 MG
     Dates: start: 200101, end: 200703
  38. LITHIUM [Suspect]
     Active Substance: LITHIUM
     Dosage: UNK
  39. LOXAPINE SUCCINATE [Suspect]
     Active Substance: LOXAPINE SUCCINATE
     Indication: Schizophrenia
     Dosage: 200 MG
     Dates: end: 2013
  40. LOXAPINE SUCCINATE [Suspect]
     Active Substance: LOXAPINE SUCCINATE
     Indication: Psychotic disorder
     Dosage: 75 MG
     Dates: end: 200812
  41. LOXAPINE SUCCINATE [Suspect]
     Active Substance: LOXAPINE SUCCINATE
     Dosage: 50 MG
     Dates: end: 200611
  42. LOXAPINE SUCCINATE [Suspect]
     Active Substance: LOXAPINE SUCCINATE
     Dosage: 50 MG
  43. LOXAPINE SUCCINATE [Suspect]
     Active Substance: LOXAPINE SUCCINATE
     Dosage: 75 MG
  44. LOXAPINE SUCCINATE [Suspect]
     Active Substance: LOXAPINE SUCCINATE
     Dosage: 200 MG
  45. LOXAPINE SUCCINATE [Suspect]
     Active Substance: LOXAPINE SUCCINATE
     Dosage: 50 MG
  46. LOXAPINE SUCCINATE [Suspect]
     Active Substance: LOXAPINE SUCCINATE
     Dosage: 75 MG
  47. OLANZAPINE [Suspect]
     Active Substance: OLANZAPINE
     Indication: Schizophrenia
     Dosage: 40 MG, QD
     Dates: start: 200704, end: 200801
  48. OLANZAPINE [Suspect]
     Active Substance: OLANZAPINE
     Indication: Psychotic disorder
     Dosage: 15 MG, QD
     Dates: start: 200611, end: 200701
  49. OLANZAPINE [Suspect]
     Active Substance: OLANZAPINE
     Indication: Product used for unknown indication
     Dosage: 20 MG, QD
     Route: 065
     Dates: start: 200101, end: 200404
  50. OLANZAPINE [Suspect]
     Active Substance: OLANZAPINE
     Dosage: 20 MG
  51. PERPHENAZINE [Suspect]
     Active Substance: PERPHENAZINE
     Indication: Schizophrenia
     Dosage: UNK UNK, QD
     Route: 065
     Dates: start: 200604
  52. PERPHENAZINE [Suspect]
     Active Substance: PERPHENAZINE
     Indication: Psychotic disorder
     Dosage: 32 MG
  53. PERPHENAZINE [Suspect]
     Active Substance: PERPHENAZINE
     Indication: Product used for unknown indication
     Dosage: 32 MG, QD
     Dates: start: 200708, end: 200708
  54. PERPHENAZINE [Suspect]
     Active Substance: PERPHENAZINE
     Dosage: UNK
  55. PERPHENAZINE [Suspect]
     Active Substance: PERPHENAZINE
     Dosage: 32 MG
  56. PERPHENAZINE [Suspect]
     Active Substance: PERPHENAZINE
     Dosage: UNK
  57. RISPERIDONE [Suspect]
     Active Substance: RISPERIDONE
     Indication: Schizophrenia
     Dosage: 3 MG
     Route: 065
     Dates: start: 201404, end: 201404
  58. RISPERIDONE [Suspect]
     Active Substance: RISPERIDONE
     Indication: Psychotic disorder
     Dosage: 8 MG
     Dates: start: 2011, end: 2013
  59. RISPERIDONE [Suspect]
     Active Substance: RISPERIDONE
     Dosage: 4 MG, QD
     Route: 065
     Dates: end: 200708
  60. RISPERIDONE [Suspect]
     Active Substance: RISPERIDONE
     Dosage: 3 MG, QD
     Route: 065
     Dates: start: 199904, end: 200404
  61. RISPERIDONE [Suspect]
     Active Substance: RISPERIDONE
     Dosage: 3 MG
  62. THIORIDAZINE [Suspect]
     Active Substance: THIORIDAZINE
     Indication: Schizophrenia
     Dosage: UNK
     Route: 048
     Dates: end: 20070628
  63. THIORIDAZINE [Suspect]
     Active Substance: THIORIDAZINE
     Indication: Psychotic disorder
     Dosage: UNK
     Dates: end: 20070628
  64. THIORIDAZINE [Suspect]
     Active Substance: THIORIDAZINE
     Indication: Product used for unknown indication
  65. TRIFLUOPERAZINE HYDROCHLORIDE [Suspect]
     Active Substance: TRIFLUOPERAZINE HYDROCHLORIDE
     Indication: Schizophrenia
     Dosage: 50 MG, QD
     Route: 065
     Dates: start: 20080326, end: 20090319
  66. TRIFLUOPERAZINE HYDROCHLORIDE [Suspect]
     Active Substance: TRIFLUOPERAZINE HYDROCHLORIDE
     Indication: Psychotic disorder
     Dosage: 5 MG
  67. TRIFLUOPERAZINE HYDROCHLORIDE [Suspect]
     Active Substance: TRIFLUOPERAZINE HYDROCHLORIDE
     Indication: Product used for unknown indication
     Dosage: 50 MG
  68. TRIFLUOPERAZINE HYDROCHLORIDE [Suspect]
     Active Substance: TRIFLUOPERAZINE HYDROCHLORIDE
     Dosage: 50 MG
  69. QUETIAPINE FUMARATE [Suspect]
     Active Substance: QUETIAPINE FUMARATE
     Indication: Schizophrenia
     Dosage: 600 MG, QD
     Dates: start: 200903
  70. QUETIAPINE FUMARATE [Suspect]
     Active Substance: QUETIAPINE FUMARATE
     Indication: Psychotic disorder
     Dosage: 600 MG
     Route: 005
  71. QUETIAPINE FUMARATE [Suspect]
     Active Substance: QUETIAPINE FUMARATE
     Indication: Product used for unknown indication
     Dosage: 600 MG
  72. QUETIAPINE FUMARATE [Suspect]
     Active Substance: QUETIAPINE FUMARATE
     Dosage: 600 MG
  73. ZELDOX [Suspect]
     Active Substance: ZIPRASIDONE
     Indication: Schizophrenia
     Dosage: 100 MG, QD
     Route: 065
     Dates: start: 2012, end: 2012
  74. ZELDOX [Suspect]
     Active Substance: ZIPRASIDONE
     Indication: Psychotic disorder
     Dosage: 100 MG
  75. ZELDOX [Suspect]
     Active Substance: ZIPRASIDONE
     Indication: Product used for unknown indication
     Dosage: 100 MG
  76. PROZAC [Suspect]
     Active Substance: FLUOXETINE HYDROCHLORIDE
     Indication: Schizophrenia
     Dosage: 80 MG
  77. ZIPRASIDONE [Suspect]
     Active Substance: ZIPRASIDONE
     Indication: Schizophrenia
     Dosage: 100 MG
  78. ZIPRASIDONE [Suspect]
     Active Substance: ZIPRASIDONE
     Dosage: UNK
     Route: 048
  79. ZIPRASIDONE [Suspect]
     Active Substance: ZIPRASIDONE
     Dosage: 100 MG
  80. HALOPERIDOL DECANOATE [Suspect]
     Active Substance: HALOPERIDOL DECANOATE
     Indication: Schizophrenia
     Dosage: 5 MG
     Route: 030
  81. ABILIFY [Suspect]
     Active Substance: ARIPIPRAZOLE
     Indication: Schizophrenia
     Dosage: 30 MG
  82. VALPROATE SODIUM [Suspect]
     Active Substance: VALPROATE SODIUM
     Indication: Product used for unknown indication
     Dosage: 1250 MG
  83. OLANZAPINE [Suspect]
     Active Substance: OLANZAPINE
     Indication: Schizophrenia
     Dosage: 40 MG
  84. ZIPRASIDONE [Suspect]
     Active Substance: ZIPRASIDONE
     Dosage: 15 MG
  85. VALPROATE SODIUM [Concomitant]
     Active Substance: VALPROATE SODIUM
     Indication: Schizophrenia
     Dosage: UNK
     Route: 065
     Dates: end: 200711
  86. VALPROATE SODIUM [Concomitant]
     Active Substance: VALPROATE SODIUM
     Indication: Affective disorder
     Dosage: UNK
     Dates: end: 200711
  87. VALPROATE [Concomitant]
     Active Substance: VALPROIC ACID
     Indication: Product used for unknown indication
     Dosage: UNK
  88. CLOMIPRAMINE HYDROCHLORIDE [Concomitant]
     Active Substance: CLOMIPRAMINE HYDROCHLORIDE
     Indication: Product used for unknown indication
  89. FLUOXETINE [Concomitant]
     Active Substance: FLUOXETINE HYDROCHLORIDE
     Indication: Product used for unknown indication
  90. FLUPENTIXOL [Concomitant]
     Active Substance: FLUPENTIXOL
     Indication: Product used for unknown indication
  91. GABAPENTIN [Concomitant]
     Active Substance: GABAPENTIN
     Indication: Product used for unknown indication
  92. LOXAPINE [Concomitant]
     Active Substance: LOXAPINE
     Indication: Product used for unknown indication
  93. QUETIAPINE FUMARATE [Concomitant]
     Active Substance: QUETIAPINE FUMARATE
     Indication: Product used for unknown indication
  94. THIORIDAZINE [Concomitant]
     Active Substance: THIORIDAZINE
     Indication: Product used for unknown indication
  95. TRIFLUOPERAZINE HYDROCHLORIDE [Concomitant]
     Active Substance: TRIFLUOPERAZINE HYDROCHLORIDE
     Indication: Product used for unknown indication
  96. ZIPRASIDONE MESYLATE [Concomitant]
     Active Substance: ZIPRASIDONE MESYLATE
     Indication: Product used for unknown indication

REACTIONS (22)
  - Disinhibition [Unknown]
  - Antipsychotic drug level below therapeutic [Unknown]
  - Obsessive-compulsive disorder [Unknown]
  - Toxicity to various agents [Unknown]
  - Schizoaffective disorder [Unknown]
  - Irritability [Unknown]
  - Prescribed overdose [Unknown]
  - Off label use [Unknown]
  - Dyslipidaemia [Unknown]
  - Leukaemia [Unknown]
  - Product use in unapproved indication [Unknown]
  - Obesity [Unknown]
  - Suicide attempt [Unknown]
  - Euphoric mood [Unknown]
  - Akathisia [Unknown]
  - Increased appetite [Unknown]
  - Leukopenia [Unknown]
  - Weight increased [Unknown]
  - Therapeutic product effect incomplete [Unknown]
  - Therapeutic product effect variable [Unknown]
  - Drug ineffective [Unknown]
  - Hypertension [Unknown]
